FAERS Safety Report 21326678 (Version 5)
Quarter: 2022Q4

REPORT INFORMATION
  Report Type: Report from Study
  Country: CN (occurrence: None)
  Receive Date: 20220913
  Receipt Date: 20221123
  Transmission Date: 20230113
  Serious: Yes (Hospitalization)
  Sender: FDA-Public Use
  Company Number: CN-ROCHE-3012379

PATIENT
  Age: 63 Year
  Sex: Male
  Weight: 67.5 kg

DRUGS (16)
  1. FARICIMAB [Suspect]
     Active Substance: FARICIMAB
     Indication: Retinal vein occlusion
     Dosage: START DATE OF MOST RECENT DOSE OF STUDY DRUG PRIOR TO AE/SAE: 29/DEC/2021
     Route: 050
     Dates: start: 20210811
  2. FARICIMAB [Suspect]
     Active Substance: FARICIMAB
     Indication: Macular oedema
  3. FARICIMAB [Suspect]
     Active Substance: FARICIMAB
     Indication: Retinal vein occlusion
     Dosage: START DATE OF MOST RECENT DOSE OF STUDY DRUG PRIOR TO AE/SAE: 29/DEC/2021
     Route: 050
     Dates: start: 20210811
  4. FARICIMAB [Suspect]
     Active Substance: FARICIMAB
     Indication: Macular oedema
  5. COMPOUND DANSHEN [Concomitant]
     Indication: Hypertension
     Route: 048
     Dates: start: 2004, end: 20220118
  6. COMPOUND RESERPINE [Concomitant]
     Indication: Hypertension
     Route: 048
     Dates: start: 2004, end: 20220118
  7. NIFEDIPINE SUSTAINED RELEASE TABLETS (I) [Concomitant]
     Indication: Hypertension
     Route: 048
     Dates: start: 2008, end: 20220118
  8. ASPIRIN [Concomitant]
     Active Substance: ASPIRIN
     Route: 048
     Dates: start: 20220117, end: 20220411
  9. CLOPIDOGREL [Concomitant]
     Active Substance: CLOPIDOGREL BISULFATE
     Route: 048
     Dates: start: 20220117
  10. ROSUVASTATIN [Concomitant]
     Active Substance: ROSUVASTATIN
     Route: 048
     Dates: start: 20220117
  11. AMLODIPINE [Concomitant]
     Active Substance: AMLODIPINE BESYLATE
     Route: 048
     Dates: start: 20220119
  12. PANTOPRAZOLE [Concomitant]
     Active Substance: PANTOPRAZOLE
     Route: 048
     Dates: start: 20220117, end: 20220411
  13. LEVOFLOXACIN [Concomitant]
     Active Substance: LEVOFLOXACIN
     Route: 048
     Dates: start: 20220126, end: 20220127
  14. AMLODIPINE [Concomitant]
     Active Substance: AMLODIPINE BESYLATE
     Route: 048
     Dates: start: 20220119
  15. BIFIDOBACTERIUM BIFIDUM [Concomitant]
     Active Substance: BIFIDOBACTERIUM BIFIDUM
     Route: 048
     Dates: start: 20220126, end: 20220127
  16. FIBROSTAT [Concomitant]
     Route: 048
     Dates: start: 20220120, end: 20220220

REACTIONS (2)
  - Cerebral infarction [Recovering/Resolving]
  - Gastroenteritis [Recovered/Resolved]

NARRATIVE: CASE EVENT DATE: 20220116
